FAERS Safety Report 16020043 (Version 1)
Quarter: 2019Q1

REPORT INFORMATION
  Report Type: Spontaneous
  Country: RO (occurrence: RO)
  Receive Date: 20190228
  Receipt Date: 20190228
  Transmission Date: 20190418
  Serious: Yes (Other)
  Sender: FDA-Public Use
  Company Number: PHHY2019RO042561

PATIENT
  Sex: Female

DRUGS (3)
  1. AVASTIN [Suspect]
     Active Substance: BEVACIZUMAB
     Indication: OVARIAN EPITHELIAL CANCER
     Dosage: 15 MG/KG, Q3W
     Route: 042
     Dates: start: 201810
  2. PACLITAXEL. [Concomitant]
     Active Substance: PACLITAXEL
     Indication: OVARIAN EPITHELIAL CANCER
     Dosage: 175 MG/M2, Q3W
     Route: 065
     Dates: start: 201810
  3. CARBOPLATIN. [Suspect]
     Active Substance: CARBOPLATIN
     Indication: OVARIAN EPITHELIAL CANCER
     Dosage: 1 OT, Q3W
     Route: 065
     Dates: start: 201810

REACTIONS (7)
  - Nausea [Unknown]
  - Bone pain [Unknown]
  - Vomiting [Unknown]
  - Neurotoxicity [Unknown]
  - Hypersensitivity [Unknown]
  - Neutropenia [Unknown]
  - Alopecia [Unknown]
